FAERS Safety Report 24684744 (Version 2)
Quarter: 2025Q3

REPORT INFORMATION
  Report Type: Spontaneous
  Country: EU (occurrence: EU)
  Receive Date: 20241202
  Receipt Date: 20250810
  Transmission Date: 20251021
  Serious: Yes (Other)
  Sender: ALEXION PHARMACEUTICALS
  Company Number: EU-ASTRAZENECA-202411EEA022659DE

PATIENT

DRUGS (2)
  1. DURVALUMAB [Suspect]
     Active Substance: DURVALUMAB
     Indication: Hepatocellular carcinoma
  2. TREMELIMUMAB [Concomitant]
     Active Substance: TREMELIMUMAB

REACTIONS (4)
  - Confusional state [Unknown]
  - Inflammation [Unknown]
  - Myocardial ischaemia [Unknown]
  - Off label use [Unknown]
